FAERS Safety Report 6895217-0 (Version None)
Quarter: 2010Q3

REPORT INFORMATION
  Report Type: 
  Country: None (occurrence: None)
  Receive Date: 20100802
  Receipt Date: 20100722
  Transmission Date: 20110219
  Serious: Yes (Hospitalization)
  Sender: FDA-Public Use
  Company Number: PHHO2010US07859

PATIENT
  Sex: Female
  Weight: 56.689 kg

DRUGS (14)
  1. LBH589 LBH+ [Suspect]
     Indication: MYELODYSPLASTIC SYNDROME
     Dosage: 20MG
     Route: 048
     Dates: start: 20100412, end: 20100517
  2. LBH589 LBH+ [Suspect]
     Dosage: 20MG
     Dates: end: 20100606
  3. LBH589 LBH+ [Suspect]
     Dosage: 15MG
     Dates: start: 20100607
  4. EXJADE [Suspect]
     Indication: MYELODYSPLASTIC SYNDROME
     Dosage: 500 MG, BID
     Route: 048
  5. ZOCOR [Concomitant]
  6. LEVOTHYROXINE SODIUM [Concomitant]
  7. LISINOPRIL [Concomitant]
  8. CARVEDILOL [Concomitant]
  9. LORATADINE [Concomitant]
  10. ASPIRIN [Concomitant]
  11. ONDANSETRON [Concomitant]
  12. VIDAZA [Concomitant]
  13. LORAZEPAM [Concomitant]
  14. LOVAZA [Concomitant]

REACTIONS (11)
  - COMPARTMENT SYNDROME [None]
  - DEBRIDEMENT [None]
  - FASCIOTOMY [None]
  - HAEMORRHAGE [None]
  - MUSCLE MASS [None]
  - MUSCLE OPERATION [None]
  - MUSCLE SWELLING [None]
  - PAIN IN EXTREMITY [None]
  - SOFT TISSUE DISORDER [None]
  - THROMBOCYTOPENIA [None]
  - WOUND CLOSURE [None]
